FAERS Safety Report 4668746-8 (Version None)
Quarter: 2005Q2

REPORT INFORMATION
  Report Type: 
  Country: None (occurrence: None)
  Receive Date: 20050523
  Receipt Date: 20050322
  Transmission Date: 20051028
  Serious: Yes (Other)
  Sender: FDA-Public Use
  Company Number: 200511054FR

PATIENT
  Age: 38 Year
  Sex: Female
  Weight: 79 kg

DRUGS (5)
  1. KETEK [Suspect]
     Indication: SINUSITIS
     Route: 048
     Dates: start: 20041011, end: 20041011
  2. SOLUPRED [Suspect]
     Route: 048
     Dates: start: 20041011, end: 20041013
  3. LEVOTHYROX [Concomitant]
     Route: 048
  4. ADVIL [Concomitant]
     Dates: start: 20041010
  5. EXOMUC [Concomitant]
     Route: 048

REACTIONS (6)
  - DYSPHONIA [None]
  - DYSPNOEA [None]
  - FATIGUE [None]
  - FEELING DRUNK [None]
  - INFECTION [None]
  - MYASTHENIA GRAVIS [None]
